FAERS Safety Report 20057899 (Version 1)
Quarter: 2021Q4

REPORT INFORMATION
  Report Type: Report from Study
  Country: DE (occurrence: DE)
  Receive Date: 20211111
  Receipt Date: 20211111
  Transmission Date: 20220303
  Serious: Yes (Other)
  Sender: FDA-Public Use
  Company Number: DE-002147023-NVSC2020DE109941

PATIENT
  Sex: Female
  Weight: 64.7 kg

DRUGS (2)
  1. LETROZOLE [Suspect]
     Active Substance: LETROZOLE
     Indication: Breast cancer metastatic
     Dosage: 2.5 MILLIGRAM, QD
     Route: 048
     Dates: start: 20200302
  2. KISQALI [Suspect]
     Active Substance: RIBOCICLIB
     Indication: Breast cancer metastatic
     Dosage: 600 MG, QD (SCHEMA 21 DAYS INTAKE 7 DAYS PAUSE)
     Route: 048
     Dates: start: 20200304

REACTIONS (9)
  - Blood pressure increased [Recovered/Resolved]
  - Haemothorax [Unknown]
  - Dyspnoea [Not Recovered/Not Resolved]
  - Groin pain [Recovered/Resolved]
  - Blood alkaline phosphatase increased [Recovered/Resolved]
  - Nocturia [Recovered/Resolved]
  - Pyrexia [Recovered/Resolved]
  - Alopecia [Not Recovered/Not Resolved]
  - Epistaxis [Not Recovered/Not Resolved]

NARRATIVE: CASE EVENT DATE: 20200309
